FAERS Safety Report 5859213-4 (Version None)
Quarter: 2008Q3

REPORT INFORMATION
  Report Type: 
  Country: None (occurrence: None)
  Receive Date: 20080827
  Receipt Date: 20080723
  Transmission Date: 20090109
  Serious: Yes (Other)
  Sender: FDA-Public Use
  Company Number: US-PFIZER INC-2008061380

PATIENT
  Sex: Male
  Weight: 37.1 kg

DRUGS (3)
  1. GENOTROPIN [Suspect]
     Indication: BODY HEIGHT BELOW NORMAL
     Route: 058
     Dates: start: 20010510, end: 20080611
  2. GENOTROPIN [Suspect]
     Dosage: TEXT:0.37/MG/KG/WK-FREQ:DAILY
     Route: 058
     Dates: start: 20080623, end: 20080721
  3. GENOTROPIN [Suspect]
     Dosage: TEXT:1MG,DAY ON 29JUL- 2-3 DAY THEN INCREASED-FREQ:DAILY
     Route: 058

REACTIONS (5)
  - ACCIDENTAL OVERDOSE [None]
  - DIARRHOEA [None]
  - HEADACHE [None]
  - MALAISE [None]
  - NAUSEA [None]
